FAERS Safety Report 5488763-8 (Version None)
Quarter: 2007Q4

REPORT INFORMATION
  Report Type: 
  Country: None (occurrence: None)
  Receive Date: 20071017
  Receipt Date: 20071005
  Transmission Date: 20080405
  Serious: Yes (Other)
  Sender: FDA-Public Use
  Company Number: SE-PFIZER INC-2007059614

PATIENT
  Age: 49 Year
  Sex: Female

DRUGS (1)
  1. SALAZOPYRIN EN [Suspect]
     Indication: RHEUMATOID ARTHRITIS
     Dosage: FREQ:DAILY
     Route: 048

REACTIONS (2)
  - DISBACTERIOSIS [None]
  - INTESTINAL FUNCTIONAL DISORDER [None]
